FAERS Safety Report 5422191-6 (Version None)
Quarter: 2007Q3

REPORT INFORMATION
  Report Type: 
  Country: None (occurrence: None)
  Receive Date: 20070821
  Receipt Date: 20070821
  Transmission Date: 20080115
  Serious: Yes (Hospitalization)
  Sender: FDA-Public Use
  Company Number: None

PATIENT
  Age: 55 Year
  Sex: Male
  Weight: 95 kg

DRUGS (2)
  1. CITALOPRAM HYDROBROMIDE [Suspect]
     Indication: DEPRESSION
     Dosage: 40MG AM PO
     Route: 048
     Dates: start: 20060130
  2. TRAMADOL HCL [Suspect]
     Indication: PAIN
     Dosage: 50MG TID PO
     Route: 048
     Dates: start: 20070626, end: 20070712

REACTIONS (1)
  - SEROTONIN SYNDROME [None]
